FAERS Safety Report 10182952 (Version 1)
Quarter: 2014Q2

REPORT INFORMATION
  Report Type: Report from Study
  Country: DE (occurrence: DE)
  Receive Date: 20140520
  Receipt Date: 20140520
  Transmission Date: 20141212
  Serious: Yes (Hospitalization)
  Sender: FDA-Public Use
  Company Number: DE-SA-2014SA059760

PATIENT
  Age: 76 Year
  Sex: Male
  Weight: 101 kg

DRUGS (4)
  1. JEVTANA [Suspect]
     Indication: PROSTATE CANCER
     Dosage: DOSE: 55 (UNITS UNSPECIFIED)
     Route: 065
     Dates: start: 20130618, end: 20130820
  2. FILGRASTIM [Concomitant]
  3. GRANISETRON [Concomitant]
  4. BISOPROLOL [Concomitant]
     Indication: HYPERTENSION

REACTIONS (2)
  - Fracture [Recovered/Resolved with Sequelae]
  - White blood cell count decreased [Recovered/Resolved]
